FAERS Safety Report 14360144 (Version 1)
Quarter: 2018Q1

REPORT INFORMATION
  Report Type: Spontaneous
  Country: DE (occurrence: DE)
  Receive Date: 20180106
  Receipt Date: 20180106
  Transmission Date: 20180509
  Serious: Yes (Hospitalization, Other)
  Sender: FDA-Public Use
  Company Number: DE-AUROBINDO-AUR-APL-2018-000515

PATIENT
  Age: 38 Year
  Sex: Female
  Weight: 64 kg

DRUGS (10)
  1. KORODIN                            /00642501/ [Concomitant]
     Indication: EXERCISE TOLERANCE DECREASED
     Dosage: ()
  2. NOVALGIN                           /00169801/ [Concomitant]
     Active Substance: ACETAMINOPHEN\CAFFEINE\PROPYPHENAZONE
     Indication: PRODUCT USED FOR UNKNOWN INDICATION
     Dosage: UNK
     Dates: start: 20161230, end: 20170123
  3. PEPPERMINT OIL [Concomitant]
     Active Substance: PEPPERMINT OIL
     Indication: DYSPEPSIA
     Dosage: UNK
  4. IBUPROFEN 600MG [Suspect]
     Active Substance: IBUPROFEN
     Indication: DYSMENORRHOEA
     Dosage: UNK
  5. IBUPROFEN 600MG [Suspect]
     Active Substance: IBUPROFEN
     Indication: EPICONDYLITIS
  6. PANTOPRAZOLE SODIUM. [Concomitant]
     Active Substance: PANTOPRAZOLE SODIUM
     Indication: PROPHYLAXIS AGAINST GASTROINTESTINAL ULCER
     Dosage: AT THE MORNING
     Route: 048
     Dates: end: 20170123
  7. KORODIN                            /00642501/ [Concomitant]
     Indication: FATIGUE
     Dosage: ()
     Dates: start: 20170120, end: 20170122
  8. ESMYA [Suspect]
     Active Substance: ULIPRISTAL ACETATE
     Indication: UTERINE LEIOMYOMA
     Dosage: 5 MG, UNK
     Route: 048
     Dates: start: 201611, end: 20170123
  9. ORTOTON                            /00047901/ [Concomitant]
     Active Substance: METHOCARBAMOL
     Indication: HYPOTONIA
     Dosage: AT THE EVENING (2)
     Route: 048
     Dates: end: 20170123
  10. IBUPROFEN 600MG [Suspect]
     Active Substance: IBUPROFEN
     Indication: BACK PAIN
     Dosage: UNK
     Route: 048
     Dates: start: 20161024, end: 20170123

REACTIONS (11)
  - Hepatic cyst [Recovered/Resolved]
  - Autoimmune hepatitis [Recovered/Resolved]
  - Renal cyst [Recovered/Resolved]
  - Drug-induced liver injury [Recovered/Resolved]
  - Influenza [Recovered/Resolved]
  - Blood urine [Recovered/Resolved]
  - Acute hepatic failure [Recovered/Resolved]
  - Constipation [Recovered/Resolved]
  - Ovarian cyst [Recovered/Resolved]
  - Gastrooesophageal reflux disease [Recovered/Resolved]
  - Fallopian tube cyst [Recovered/Resolved]

NARRATIVE: CASE EVENT DATE: 201612
